FAERS Safety Report 13769839 (Version 4)
Quarter: 2017Q4

REPORT INFORMATION
  Report Type: Spontaneous
  Country: US (occurrence: US)
  Receive Date: 20170719
  Receipt Date: 20171205
  Transmission Date: 20180320
  Serious: Yes (Hospitalization)
  Sender: FDA-Public Use
  Company Number: US-ACTELION-A-US2017-156858

PATIENT
  Age: 66 Year
  Sex: Female
  Weight: 56.69 kg

DRUGS (4)
  1. WARFARIN [Concomitant]
     Active Substance: WARFARIN
  2. OPSUMIT [Suspect]
     Active Substance: MACITENTAN
     Indication: PULMONARY ARTERIAL HYPERTENSION
     Dosage: 10 MG, QD
     Route: 048
  3. ADCIRCA [Concomitant]
     Active Substance: TADALAFIL
  4. DILTIAZEM. [Concomitant]
     Active Substance: DILTIAZEM

REACTIONS (12)
  - Internal haemorrhage [Unknown]
  - Hepatectomy [Unknown]
  - Fatigue [Unknown]
  - Unevaluable event [Unknown]
  - Feeling hot [Unknown]
  - Colectomy [Unknown]
  - Cholecystectomy [Unknown]
  - Oxygen therapy [Unknown]
  - Panic attack [Unknown]
  - Transfusion [Unknown]
  - Weight decreased [Unknown]
  - Abdominal pain upper [Unknown]
